FAERS Safety Report 4953719-8 (Version None)
Quarter: 2006Q1

REPORT INFORMATION
  Report Type: 
  Country: None (occurrence: None)
  Receive Date: 20060323
  Receipt Date: 20060323
  Transmission Date: 20060701
  Serious: Yes (Life-Threatening, Hospitalization)
  Sender: FDA-Public Use
  Company Number: None

PATIENT
  Age: 60 Year
  Sex: Female
  Weight: 56.6996 kg

DRUGS (1)
  1. KETEK [Suspect]
     Indication: PNEUMONIA
     Dosage: 800 MG   1 TIME PER DAY   PO
     Route: 048
     Dates: start: 20060109, end: 20060109

REACTIONS (1)
  - RESPIRATORY FAILURE [None]
